FAERS Safety Report 5167840-5 (Version None)
Quarter: 2006Q4

REPORT INFORMATION
  Report Type: 
  Country: None (occurrence: None)
  Receive Date: 20061206
  Receipt Date: 20061206
  Transmission Date: 20070319
  Serious: Yes (Other)
  Sender: FDA-Public Use
  Company Number: None

PATIENT
  Age: 76 Year
  Sex: Female

DRUGS (6)
  1. ROZEREM [Suspect]
     Indication: INSOMNIA
     Dosage: 8MG  QHS PO X 3 DAYS
     Route: 048
  2. PAXIL [Concomitant]
  3. LEVOXYL [Concomitant]
  4. ASPIRIN [Concomitant]
  5. PRILOSEC [Concomitant]
  6. PREMARIN [Concomitant]

REACTIONS (4)
  - ACNE [None]
  - INCORRECT DOSE ADMINISTERED [None]
  - RASH MORBILLIFORM [None]
  - URTICARIA [None]
